FAERS Safety Report 7627419-X (Version None)
Quarter: 2011Q3

REPORT INFORMATION
  Report Type: 
  Country: None (occurrence: None)
  Receive Date: 20110721
  Receipt Date: 20110718
  Transmission Date: 20111222
  Serious: No
  Sender: FDA-Public Use
  Company Number: US-PFIZER INC-2011163689

PATIENT
  Sex: Male
  Weight: 145 kg

DRUGS (13)
  1. TRAZODONE [Concomitant]
     Indication: SLEEP DISORDER
     Dosage: 600 MG, UNK
     Route: 048
  2. CLONAZEPAM [Concomitant]
     Indication: MENTAL DISORDER
     Dosage: 2 MG, 2X/DAY
  3. PROZAC [Concomitant]
     Indication: MENTAL DISORDER
     Dosage: 40 MG DAILY EVENING, 20 MG DAILY MORNING
  4. ABILIFY [Concomitant]
     Indication: MENTAL DISORDER
     Dosage: 10 MG, 1X/DAY
  5. LANTUS [Concomitant]
     Indication: DIABETES MELLITUS
     Dosage: DAILY
  6. VIAGRA [Suspect]
     Indication: ERECTILE DYSFUNCTION
     Dosage: 50 MG, AS NEEDED
     Route: 048
     Dates: start: 20110501
  7. LITHIUM CARBONATE [Concomitant]
     Indication: BIPOLAR DISORDER
     Dosage: 300 MG, 3X/DAY
  8. HUMALOG [Concomitant]
     Indication: DIABETES MELLITUS
     Dosage: 15 IU, 3X/DAY
  9. AMLODIPINE [Concomitant]
     Indication: HYPERTENSION
     Dosage: 10 MG, 1X/DAY
     Route: 048
  10. DOC-Q-LACE [Concomitant]
     Indication: FAECES HARD
     Dosage: 100 MG, 2X/DAY
  11. METFORMIN [Concomitant]
     Indication: DIABETES MELLITUS
     Dosage: 1000 MG, 2X/DAY
  12. LISINOPRIL [Concomitant]
     Indication: HYPERTENSION
     Dosage: 10 MG, 1X/DAY
     Route: 048
  13. PRAVASTATIN [Concomitant]
     Indication: BLOOD CHOLESTEROL ABNORMAL
     Dosage: 80 MG, 1X/DAY
     Route: 048

REACTIONS (1)
  - DRUG EFFECT DELAYED [None]
